FAERS Safety Report 12814091 (Version 1)
Quarter: 2016Q4

REPORT INFORMATION
  Report Type: Report from Study
  Country: IL (occurrence: IL)
  Receive Date: 20161005
  Receipt Date: 20161005
  Transmission Date: 20170207
  Serious: Yes (Death, Life-Threatening, Hospitalization, Other)
  Sender: FDA-Public Use
  Company Number: IL-TEVA-696941ACC

PATIENT
  Sex: Male

DRUGS (8)
  1. TRAVAMIN [Concomitant]
  2. AMPYRA [Concomitant]
     Active Substance: DALFAMPRIDINE
  3. BONDORMIN [Concomitant]
     Active Substance: BROTIZOLAM
  4. COPAXONE [Suspect]
     Active Substance: GLATIRAMER ACETATE
     Indication: MULTIPLE SCLEROSIS
     Dosage: 40MG/ML
     Route: 058
     Dates: start: 20160420, end: 20160920
  5. BACLOSAL [Concomitant]
  6. GLUBEN [Concomitant]
  7. TRIBEMIN [Concomitant]
  8. METFORMIN [Concomitant]
     Active Substance: METFORMIN HYDROCHLORIDE

REACTIONS (2)
  - Pneumonia [Fatal]
  - Aspiration [Unknown]

NARRATIVE: CASE EVENT DATE: 2016
